FAERS Safety Report 4316498-3 (Version None)
Quarter: 2004Q1

REPORT INFORMATION
  Report Type: 
  Country: None (occurrence: None)
  Receive Date: 20040311
  Receipt Date: 20040301
  Transmission Date: 20041129
  Serious: Yes (Hospitalization)
  Sender: FDA-Public Use
  Company Number: 2004013891

PATIENT
  Age: 4 Year
  Sex: Male

DRUGS (6)
  1. ZITHROMAX [Suspect]
     Indication: BRONCHITIS
     Dosage: 180 MG ORAL
     Route: 048
     Dates: start: 20040213, end: 20040214
  2. DEXTROMETHORPHAN HYDROBROMIDE [Concomitant]
  3. AMBROXOL HYDROCHLORIDE (AMBROXOL HYDROCHLORIDE) [Concomitant]
  4. STREPTOCOCCUS FAECALIS [Concomitant]
  5. TOLUBUTEROL HYDROCHLORIDE [Concomitant]
  6. CLARITHROMYCIN [Concomitant]

REACTIONS (2)
  - EXANTHEM [None]
  - STOMATITIS [None]
